FAERS Safety Report 16709485 (Version 4)
Quarter: 2020Q2

REPORT INFORMATION
  Report Type: Report from Study
  Country: None (occurrence: US)
  Receive Date: 20190816
  Receipt Date: 20200625
  Transmission Date: 20200713
  Serious: Yes (Congenital Anomaly, Other)
  Sender: FDA-Public Use
  Company Number: US-ABBVIE-19K-163-2890954-00

PATIENT
  Sex: Male

DRUGS (4)
  1. HUMIRA [Suspect]
     Active Substance: ADALIMUMAB
     Indication: MATERNAL EXPOSURE TIMING UNSPECIFIED
     Dosage: CITRATE FREE
     Route: 064
     Dates: start: 20170510, end: 20181215
  2. HUMIRA [Suspect]
     Active Substance: ADALIMUMAB
     Indication: MATERNAL EXPOSURE TIMING UNSPECIFIED
     Route: 063
  3. HUMIRA [Suspect]
     Active Substance: ADALIMUMAB
     Route: 063
     Dates: start: 201901, end: 2019
  4. HUMIRA [Suspect]
     Active Substance: ADALIMUMAB
     Route: 063

REACTIONS (6)
  - Kidney enlargement [Recovered/Resolved]
  - Foetal exposure during pregnancy [Unknown]
  - Hydroureter [Unknown]
  - Exposure via breast milk [Unknown]
  - Hydronephrosis [Unknown]
  - Ureteric dilatation [Not Recovered/Not Resolved]
